FAERS Safety Report 4713089-7 (Version None)
Quarter: 2005Q3

REPORT INFORMATION
  Report Type: 
  Country: None (occurrence: None)
  Receive Date: 20050712
  Receipt Date: 20050712
  Transmission Date: 20060218
  Serious: Yes (Hospitalization)
  Sender: FDA-Public Use
  Company Number: None

PATIENT
  Age: 74 Year
  Sex: Male
  Weight: 88.9 kg

DRUGS (12)
  1. OMEPRAZOLE [Suspect]
     Indication: GASTROOESOPHAGEAL REFLUX DISEASE
     Dosage: 20 MG, 20 MG DAI, ORAL
     Route: 048
     Dates: start: 20040723, end: 20050403
  2. SYNTHROID [Concomitant]
  3. MINOXIDIL [Concomitant]
  4. FUROSEMIDE [Concomitant]
  5. METOPROLOL TARTRATE [Concomitant]
  6. POTASSIUM CHLORIDE [Concomitant]
  7. SIMVASTATIN [Concomitant]
  8. FLOUXETINE HCL [Concomitant]
  9. PRAZOSIN HCL [Concomitant]
  10. CLONIDINE HCL [Concomitant]
  11. DILTIAZEM (INWOOD) [Concomitant]
  12. TERAZOSIN HCL [Concomitant]

REACTIONS (2)
  - NEPHRITIS INTERSTITIAL [None]
  - RENAL FAILURE ACUTE [None]
